FAERS Safety Report 9431595 (Version 2)
Quarter: 2013Q3

REPORT INFORMATION
  Report Type: Spontaneous
  Country: US (occurrence: US)
  Receive Date: 20130731
  Receipt Date: 20130816
  Transmission Date: 20140515
  Serious: Yes (Hospitalization)
  Sender: FDA-Public Use
  Company Number: US-BIOGENIDEC-2013BI067927

PATIENT
  Age: 45 Year
  Sex: Male

DRUGS (11)
  1. TYSABRI [Suspect]
     Indication: MULTIPLE SCLEROSIS
     Route: 042
     Dates: start: 20100811, end: 20100908
  2. TYSABRI [Suspect]
     Indication: MULTIPLE SCLEROSIS
     Route: 042
     Dates: start: 20110617, end: 20130509
  3. ARTIFICIAL TEARS [Concomitant]
  4. ASPIRIN [Concomitant]
  5. CARDIZEM [Concomitant]
     Route: 048
  6. DOCUSATE SODIUM [Concomitant]
  7. LACRI-LUBE [Concomitant]
  8. REMERON [Concomitant]
  9. OXYBUTYNIN [Concomitant]
  10. ZOCOR [Concomitant]
  11. TYLENOL [Concomitant]

REACTIONS (1)
  - Sepsis [Recovered/Resolved]
